FAERS Safety Report 14890913 (Version 1)
Quarter: 2018Q2

REPORT INFORMATION
  Report Type: Spontaneous
  Country: US (occurrence: US)
  Receive Date: 20180514
  Receipt Date: 20180514
  Transmission Date: 20180711
  Serious: No
  Sender: FDA-Public Use
  Company Number: US-UNITED THERAPEUTICS-UNT-2018-003062

PATIENT
  Sex: Female
  Weight: 74.83 kg

DRUGS (1)
  1. REMODULIN [Suspect]
     Active Substance: TREPROSTINIL
     Indication: PULMONARY ARTERIAL HYPERTENSION
     Dosage: 0.0316 ?G/KG, CONTINUING
     Route: 041
     Dates: start: 20171212

REACTIONS (4)
  - Overdose [Unknown]
  - Somnolence [Unknown]
  - Cough [Unknown]
  - Device leakage [Unknown]
